FAERS Safety Report 24120652 (Version 1)
Quarter: 2024Q3

REPORT INFORMATION
  Report Type: Report from Study
  Country: MA (occurrence: MA)
  Receive Date: 20240722
  Receipt Date: 20240722
  Transmission Date: 20241017
  Serious: Yes (Death)
  Sender: TAMARANG PHARMACEUTICALS
  Company Number: MA-Tamarang, S.A.-2159291

PATIENT
  Age: 1 Day

DRUGS (2)
  1. ROCURONIUM BROMIDE [Suspect]
     Active Substance: ROCURONIUM BROMIDE
     Route: 030
  2. SUGAMMADEX [Concomitant]
     Active Substance: SUGAMMADEX
     Route: 042

REACTIONS (4)
  - Bradycardia [Fatal]
  - Neonatal seizure [Fatal]
  - Apnoea [Fatal]
  - Cyanosis [Fatal]
